FAERS Safety Report 13202299 (Version 3)
Quarter: 2018Q1

REPORT INFORMATION
  Report Type: Spontaneous
  Country: US (occurrence: US)
  Receive Date: 20170209
  Receipt Date: 20180312
  Transmission Date: 20180508
  Serious: Yes (Other)
  Sender: FDA-Public Use
  Company Number: US-PFIZER INC-2017054762

PATIENT
  Age: 76 Year
  Sex: Female
  Weight: 88.44 kg

DRUGS (2)
  1. XELJANZ XR [Suspect]
     Active Substance: TOFACITINIB CITRATE
     Indication: ARTHRITIS
     Dosage: 11 MG, UNK (ONCE)
     Dates: start: 201701, end: 2017
  2. XELJANZ XR [Suspect]
     Active Substance: TOFACITINIB CITRATE
     Indication: RHEUMATOID ARTHRITIS
     Dosage: 11 MG, UNK (ONCE)
     Route: 048
     Dates: start: 2016

REACTIONS (2)
  - Red blood cell sedimentation rate increased [Unknown]
  - Tuberculosis [Recovered/Resolved]

NARRATIVE: CASE EVENT DATE: 2017
